FAERS Safety Report 4399053-9 (Version None)
Quarter: 2004Q3

REPORT INFORMATION
  Report Type: 
  Country: None (occurrence: None)
  Receive Date: 20040712
  Receipt Date: 20040621
  Transmission Date: 20050211
  Serious: Yes (Hospitalization, Other)
  Sender: FDA-Public Use
  Company Number: USA040668950

PATIENT
  Age: 64 Year
  Sex: Female
  Weight: 100 kg

DRUGS (13)
  1. ALIMTA [Suspect]
     Indication: MESOTHELIOMA
     Dosage: 1000 MG OTHER
     Dates: start: 20040416, end: 20040528
  2. CISPLATIN [Concomitant]
  3. DEXAMETHASONE [Concomitant]
  4. FOLIC ACID [Concomitant]
  5. VITAMIN B12 FOR INJECTION (CYANOBALAMIN) [Concomitant]
  6. TAMBOCOR [Concomitant]
  7. METOPROLOL [Concomitant]
  8. PREVACID [Concomitant]
  9. DECADRON [Concomitant]
  10. ANZEMET(DOLASETRON MESILATE) [Concomitant]
  11. LASIX [Concomitant]
  12. ARANESP [Concomitant]
  13. ALOXI [Concomitant]

REACTIONS (14)
  - ANXIETY [None]
  - ASTHENIA [None]
  - ATRIAL FIBRILLATION [None]
  - BLOOD MAGNESIUM DECREASED [None]
  - BREATH SOUNDS ABSENT [None]
  - DYSPNOEA [None]
  - EPISTAXIS [None]
  - HYPOXIA [None]
  - MALIGNANT NEOPLASM PROGRESSION [None]
  - MESOTHELIOMA [None]
  - NAUSEA [None]
  - PANCYTOPENIA [None]
  - PYREXIA [None]
  - VOMITING [None]
